FAERS Safety Report 8561573-0 (Version None)
Quarter: 2012Q3

REPORT INFORMATION
  Report Type: 
  Country: None (occurrence: None)
  Receive Date: 20120802
  Receipt Date: 20120726
  Transmission Date: 20120928
  Serious: Yes (Other)
  Sender: FDA-Public Use
  Company Number: JP-VERTEX PHARMACEUTICALS INC.-AE-2012-008815

PATIENT
  Age: 35 Year
  Sex: Female

DRUGS (7)
  1. TELAVIC (TELAPREVIR) [Suspect]
     Indication: HEPATITIS C
     Route: 048
     Dates: start: 20120526, end: 20120604
  2. ALLOPURINOL [Concomitant]
     Route: 048
     Dates: start: 20120526
  3. RIBAVIRIN [Concomitant]
     Indication: HEPATITIS C
     Route: 048
     Dates: start: 20120526, end: 20120604
  4. PRIMPERAN TAB [Concomitant]
     Route: 048
     Dates: start: 20120526
  5. LAC-B [Concomitant]
     Route: 048
     Dates: start: 20120526
  6. EVAMYL [Concomitant]
     Route: 048
     Dates: start: 20120526
  7. PEGINTERFERON ALFA-2B [Concomitant]
     Indication: HEPATITIS C
     Route: 058
     Dates: start: 20120526, end: 20120604

REACTIONS (3)
  - HAEMOGLOBIN DECREASED [None]
  - NEUTROPHIL COUNT DECREASED [None]
  - BONE MARROW FAILURE [None]
